FAERS Safety Report 7098319-1 (Version None)
Quarter: 2010Q4

REPORT INFORMATION
  Report Type: 
  Country: None (occurrence: None)
  Receive Date: 20101112
  Receipt Date: 20101104
  Transmission Date: 20110411
  Serious: No
  Sender: FDA-Public Use
  Company Number: US-PFIZER INC-2010141016

PATIENT
  Sex: Male
  Weight: 96.6 kg

DRUGS (7)
  1. LYRICA [Suspect]
     Indication: FIBROMYALGIA
     Dosage: 450 MG, DAILY
     Route: 048
     Dates: start: 20091201, end: 20101001
  2. MORPHINE [Concomitant]
     Indication: PAIN
     Dosage: UNK
  3. TRAMADOL [Concomitant]
     Indication: PAIN
     Dosage: UNK
  4. AMITRIPTYLINE [Concomitant]
     Indication: SLEEP DISORDER
     Dosage: UNK
  5. AMBIEN [Concomitant]
     Indication: SLEEP DISORDER
     Dosage: UNK
  6. CYMBALTA [Concomitant]
     Indication: ANXIETY
     Dosage: UNK
  7. TESTOSTERONE [Concomitant]
     Dosage: UNK, 2X/MONTH

REACTIONS (9)
  - FLUID RETENTION [None]
  - HOT FLUSH [None]
  - MUSCLE SPASMS [None]
  - NIGHT SWEATS [None]
  - POLLAKIURIA [None]
  - POLYURIA [None]
  - WEIGHT DECREASED [None]
  - WEIGHT INCREASED [None]
  - WITHDRAWAL SYNDROME [None]
